FAERS Safety Report 5256699-3 (Version None)
Quarter: 2007Q1

REPORT INFORMATION
  Report Type: 
  Country: None (occurrence: None)
  Receive Date: 20070306
  Receipt Date: 20070223
  Transmission Date: 20070707
  Serious: Yes (Other)
  Sender: FDA-Public Use
  Company Number: BE-PFIZER INC-2007014532

PATIENT
  Age: 70 Year
  Sex: Male
  Weight: 80 kg

DRUGS (4)
  1. AMLODIPINE [Suspect]
     Indication: HYPERTENSION
     Route: 048
  2. PRAVASTATIN [Concomitant]
  3. ACCUPRIL [Concomitant]
  4. ASPIRIN [Concomitant]

REACTIONS (1)
  - DERMATITIS PSORIASIFORM [None]
